FAERS Safety Report 23734214 (Version 2)
Quarter: 2024Q2

REPORT INFORMATION
  Report Type: Spontaneous
  Country: US (occurrence: US)
  Receive Date: 20240412
  Receipt Date: 20240419
  Transmission Date: 20240716
  Serious: Yes (Hospitalization, Other)
  Sender: FDA-Public Use
  Company Number: US-ABBVIE-5710577

PATIENT

DRUGS (1)
  1. BOTOX [Suspect]
     Active Substance: ONABOTULINUMTOXINA
     Indication: Skin cosmetic procedure
     Dosage: TIME INTERVAL: AS NECESSARY
     Route: 065

REACTIONS (12)
  - Facial paralysis [Unknown]
  - Muscular weakness [Unknown]
  - Fatigue [Unknown]
  - Eyelid ptosis [Unknown]
  - Dyspnoea [Unknown]
  - Hypoaesthesia [Unknown]
  - Dysphonia [Unknown]
  - Dry mouth [Unknown]
  - Vision blurred [Unknown]
  - Dysphagia [Unknown]
  - Hospitalisation [Unknown]
  - Diplopia [Unknown]
